FAERS Safety Report 6054543-8 (Version None)
Quarter: 2009Q1

REPORT INFORMATION
  Report Type: 
  Country: None (occurrence: None)
  Receive Date: 20090127
  Receipt Date: 20090119
  Transmission Date: 20090719
  Serious: Yes (Hospitalization)
  Sender: FDA-Public Use
  Company Number: CA-ALLERGAN-0900776US

PATIENT
  Sex: Female

DRUGS (3)
  1. BOTOX [Suspect]
     Indication: HEADACHE
     Dosage: 100 UNITS, SINGLE
     Route: 030
     Dates: start: 20080901, end: 20080901
  2. BOTOX [Suspect]
     Route: 030
     Dates: start: 20081201, end: 20081201
  3. BOTOX [Suspect]
     Dates: start: 20080501, end: 20080501

REACTIONS (1)
  - HEADACHE [None]
